FAERS Safety Report 4369984-4 (Version None)
Quarter: 2004Q2

REPORT INFORMATION
  Report Type: 
  Country: None (occurrence: None)
  Receive Date: 20040527
  Receipt Date: 20040409
  Transmission Date: 20050107
  Serious: Yes (Hospitalization, Other)
  Sender: FDA-Public Use
  Company Number: 2004EU000785

PATIENT
  Age: 24 Year
  Sex: Male

DRUGS (1)
  1. FK506(TACROLIMUS) CAPSULE [Suspect]
     Indication: HEART TRANSPLANT
     Dosage: 12.00MG AND 5 MG , D, ORAL
     Route: 048
     Dates: start: 19980808

REACTIONS (5)
  - ATRIOVENTRICULAR BLOCK COMPLETE [None]
  - BRADYARRHYTHMIA [None]
  - HYPOTONIA [None]
  - NAUSEA [None]
  - SYNCOPE [None]
